FAERS Safety Report 18411798 (Version 2)
Quarter: 2020Q4

REPORT INFORMATION
  Report Type: Report from Study
  Country: US (occurrence: US)
  Receive Date: 20201021
  Receipt Date: 20201209
  Transmission Date: 20210114
  Serious: Yes (Hospitalization)
  Sender: FDA-Public Use
  Company Number: US-BAYER-2020-221707

PATIENT
  Age: 35 Year
  Sex: Female

DRUGS (2)
  1. STIVARGA [Suspect]
     Active Substance: REGORAFENIB
     Indication: RECTOSIGMOID CANCER
     Dosage: 80 MG, QD FOR 21 DAYS ON, 7 DAYS OFF
     Route: 048
     Dates: start: 20200914, end: 20201204
  2. STIVARGA [Suspect]
     Active Substance: REGORAFENIB
     Indication: COLON CANCER

REACTIONS (4)
  - Hospitalisation [Unknown]
  - Pyrexia [None]
  - Off label use [None]
  - Rash [None]

NARRATIVE: CASE EVENT DATE: 20200914
